FAERS Safety Report 6765193-X (Version None)
Quarter: 2010Q2

REPORT INFORMATION
  Report Type: 
  Country: None (occurrence: None)
  Receive Date: 20100610
  Receipt Date: 20100610
  Transmission Date: 20101027
  Serious: Yes (Other)
  Sender: FDA-Public Use
  Company Number: None

PATIENT
  Age: 23 Year
  Sex: Female
  Weight: 56.6996 kg

DRUGS (1)
  1. YAZ [Suspect]
     Indication: CONTRACEPTION
     Dates: start: 20080101, end: 20100609

REACTIONS (11)
  - AURA [None]
  - DISTURBANCE IN ATTENTION [None]
  - DIZZINESS [None]
  - HALO VISION [None]
  - IMPAIRED DRIVING ABILITY [None]
  - MOVEMENT DISORDER [None]
  - PAIN IN EXTREMITY [None]
  - PALPITATIONS [None]
  - SYNCOPE [None]
  - VISION BLURRED [None]
  - VISUAL IMPAIRMENT [None]
